FAERS Safety Report 6148777-1 (Version None)
Quarter: 2009Q2

REPORT INFORMATION
  Report Type: 
  Country: None (occurrence: None)
  Receive Date: 20090408
  Receipt Date: 20090331
  Transmission Date: 20091009
  Serious: Yes (Death, Hospitalization)
  Sender: FDA-Public Use
  Company Number: US-ELI_LILLY_AND_COMPANY-US200903007808

PATIENT
  Sex: Male

DRUGS (11)
  1. ZYPREXA [Suspect]
     Indication: BIPOLAR DISORDER
     Route: 030
     Dates: start: 20090329
  2. ZYPREXA [Suspect]
     Indication: BIPOLAR DISORDER
  3. HALDOL /SCH/ [Concomitant]
  4. ATIVAN [Concomitant]
  5. ARICEPT [Concomitant]
  6. NAMENDA [Concomitant]
  7. ZITHROMAX [Concomitant]
  8. ASPIRIN [Concomitant]
  9. LAMICTAL [Concomitant]
  10. LIPITOR [Concomitant]
  11. LISINOPRIL [Concomitant]

REACTIONS (2)
  - DEATH [None]
  - HOSPITALISATION [None]
